FAERS Safety Report 5542626-8 (Version None)
Quarter: 2007Q4

REPORT INFORMATION
  Report Type: 
  Country: None (occurrence: None)
  Receive Date: 20071123
  Receipt Date: 20070521
  Transmission Date: 20080405
  Serious: Yes (Other)
  Sender: FDA-Public Use
  Company Number: US-JNJFOC-20070501244

PATIENT
  Age: 86 Year
  Sex: Male

DRUGS (13)
  1. LEVAQUIN [Suspect]
     Indication: DRUG USE FOR UNKNOWN INDICATION
     Dosage: ORAL
     Route: 048
  2. GLUCOSAMINE (GLUCOSAMINE) [Concomitant]
  3. LUNESTA [Concomitant]
  4. TOPAMAX [Concomitant]
  5. ATENOLOL [Concomitant]
  6. FELODIPINE (FELODPINE) [Concomitant]
  7. TRAMADOL HCL [Concomitant]
  8. POTASSIUM (POTASSIUM) [Concomitant]
  9. VITAMIN B (VITAMIN B) [Concomitant]
  10. ACETYLSALICYLIC ACID SRT [Concomitant]
  11. CALCIUM (CALCIUM) [Concomitant]
  12. MILK OF MAGNESIA TAB [Concomitant]
  13. PREDNISONE [Concomitant]

REACTIONS (1)
  - TENDON RUPTURE [None]
